FAERS Safety Report 19088573 (Version 1)
Quarter: 2021Q2

REPORT INFORMATION
  Report Type: Spontaneous
  Country: None (occurrence: GR)
  Receive Date: 20210402
  Receipt Date: 20210402
  Transmission Date: 20210717
  Serious: Yes (Hospitalization)
  Sender: FDA-Public Use
  Company Number: GR-VALIDUS PHARMACEUTICALS LLC-GR-2021VAL000578

PATIENT
  Age: 15 Year
  Sex: Male

DRUGS (3)
  1. ALDACTONE?A [Concomitant]
     Active Substance: SPIRONOLACTONE
     Indication: PRODUCT USED FOR UNKNOWN INDICATION
  2. SINTROM [Concomitant]
     Active Substance: ACENOCOUMAROL
     Indication: PRODUCT USED FOR UNKNOWN INDICATION
  3. FUROSEMIDE. [Suspect]
     Active Substance: FUROSEMIDE
     Indication: CARDIAC DISORDER
     Route: 048

REACTIONS (3)
  - Cardiac disorder [Unknown]
  - Type 1 diabetes mellitus [Unknown]
  - Hospitalisation [Unknown]

NARRATIVE: CASE EVENT DATE: 20190416
